FAERS Safety Report 15884590 (Version 1)
Quarter: 2019Q1

REPORT INFORMATION
  Report Type: Report from Study
  Country: US (occurrence: US)
  Receive Date: 20190129
  Receipt Date: 20190129
  Transmission Date: 20190417
  Serious: Yes (Other)
  Sender: FDA-Public Use
  Company Number: US-SAKK-2019SA021913AA

PATIENT
  Sex: Female

DRUGS (1)
  1. INSULIN GLULISINE [Suspect]
     Active Substance: INSULIN GLULISINE
     Dosage: UNK

REACTIONS (9)
  - Asthenia [Unknown]
  - Arthralgia [Unknown]
  - Pain [Unknown]
  - Dysphonia [Unknown]
  - Limb deformity [Unknown]
  - Fibromyalgia [Unknown]
  - Fatigue [Unknown]
  - Swelling [Unknown]
  - Weight fluctuation [Unknown]
